FAERS Safety Report 13395584 (Version 1)
Quarter: 2017Q2

REPORT INFORMATION
  Report Type: Spontaneous
  Country: US (occurrence: US)
  Receive Date: 20170401
  Receipt Date: 20170401
  Transmission Date: 20170830
  Serious: Yes (Disabling)
  Sender: FDA-Public Use
  Company Number: None

PATIENT
  Age: 9 Year
  Sex: Male
  Weight: 25.2 kg

DRUGS (1)
  1. MIRALAX [Suspect]
     Active Substance: POLYETHYLENE GLYCOL 3350
     Indication: CONSTIPATION
     Route: 048

REACTIONS (7)
  - Tic [None]
  - Social anxiety disorder [None]
  - Mood swings [None]
  - Fear [None]
  - Anxiety [None]
  - Stress [None]
  - Obsessive-compulsive disorder [None]

NARRATIVE: CASE EVENT DATE: 20080202
